FAERS Safety Report 9975813 (Version 3)
Quarter: 2014Q2

REPORT INFORMATION
  Report Type: Spontaneous
  Country: US (occurrence: US)
  Receive Date: 20140306
  Receipt Date: 20140630
  Transmission Date: 20141212
  Serious: Yes (Other)
  Sender: FDA-Public Use
  Company Number: US-PFIZER INC-2014063290

PATIENT
  Age: 71 Year
  Sex: Female

DRUGS (4)
  1. LIPITOR [Suspect]
     Indication: LOW DENSITY LIPOPROTEIN INCREASED
     Dosage: 20 MG, 1X/DAY
     Route: 048
     Dates: start: 200404, end: 2012
  2. LIPITOR [Suspect]
     Indication: CARDIOVASCULAR EVENT PROPHYLAXIS
  3. CLONIDINE [Concomitant]
     Indication: HYPERTENSION
     Dosage: 0.1 MG, 2X/DAY
     Dates: start: 2005
  4. LATANOPROST [Concomitant]
     Indication: GLAUCOMA
     Dosage: 0.005 (UNKNOWN UNITS) ONCE DAILY
     Dates: start: 2006

REACTIONS (1)
  - Type 2 diabetes mellitus [Not Recovered/Not Resolved]
